FAERS Safety Report 6803264-X (Version None)
Quarter: 2010Q2

REPORT INFORMATION
  Report Type: 
  Country: None (occurrence: None)
  Receive Date: 20100628
  Receipt Date: 20090824
  Transmission Date: 20101027
  Serious: No
  Sender: FDA-Public Use
  Company Number: US-ASTRAZENECA-2009SE09469

PATIENT
  Age: 64 Year
  Sex: Male
  Weight: 74.8 kg

DRUGS (8)
  1. ZOLADEX [Suspect]
     Indication: PROSTATE CANCER
     Route: 058
     Dates: end: 20071114
  2. ZOLADEX [Suspect]
     Route: 058
     Dates: start: 20090127
  3. CASODEX [Suspect]
     Indication: PROSTATE CANCER
     Route: 048
     Dates: end: 20071114
  4. TRELSTAR [Suspect]
     Indication: PROSTATE CANCER
     Route: 065
     Dates: start: 20080215, end: 20081001
  5. ATENOLOL [Concomitant]
     Indication: HYPERTENSION
     Route: 065
  6. LIPITOR [Concomitant]
     Indication: BLOOD CHOLESTEROL INCREASED
     Route: 065
  7. DIABETIC MEDICATION [Concomitant]
     Route: 065
  8. ISTALOL [Concomitant]
     Indication: GLAUCOMA
     Route: 065

REACTIONS (6)
  - AFFECT LABILITY [None]
  - AMNESIA [None]
  - CONFUSIONAL STATE [None]
  - DELUSION [None]
  - DEPRESSION [None]
  - HALLUCINATION [None]
